FAERS Safety Report 8276221-7 (Version None)
Quarter: 2012Q2

REPORT INFORMATION
  Report Type: 
  Country: None (occurrence: None)
  Receive Date: 20120409
  Receipt Date: 20120328
  Transmission Date: 20120825
  Serious: Yes (Other)
  Sender: FDA-Public Use
  Company Number: 2012SP016995

PATIENT
  Age: 44 Year
  Sex: Female

DRUGS (7)
  1. REMERON (MIRTAZAPINE /01293201/) [Suspect]
     Indication: PRODUCT USED FOR UNKNOWN INDICATION
     Dosage: 270 MG; ONCE
     Dates: start: 20110819, end: 20110819
  2. MORPHINE SULFATE [Suspect]
     Indication: PRODUCT USED FOR UNKNOWN INDICATION
     Dosage: 2400 MG; ONCE
     Dates: start: 20110819, end: 20110819
  3. LANSOPRAZOLE [Suspect]
     Indication: PRODUCT USED FOR UNKNOWN INDICATION
     Dates: start: 20110819, end: 20110819
  4. MEBEVERINE (MEBEVERINE) [Suspect]
     Indication: PRODUCT USED FOR UNKNOWN INDICATION
     Dates: start: 20110819, end: 20110819
  5. ZOLPIDEM TARTRATE [Suspect]
     Indication: PRODUCT USED FOR UNKNOWN INDICATION
     Dosage: 140 MCG; ONCE
     Dates: start: 20110819, end: 20110819
  6. ROHYPNOL (FLUNITRAZEPAM) [Suspect]
     Indication: PRODUCT USED FOR UNKNOWN INDICATION
     Dosage: 13 MG; ONCE
     Dates: start: 20110819, end: 20110819
  7. TIZANIDINE HCL [Suspect]
     Indication: PRODUCT USED FOR UNKNOWN INDICATION
     Dates: start: 20110819, end: 20110819

REACTIONS (7)
  - DELIRIUM [None]
  - MULTIPLE DRUG OVERDOSE INTENTIONAL [None]
  - SUICIDE ATTEMPT [None]
  - ELECTROCARDIOGRAM QT PROLONGED [None]
  - POISONING [None]
  - HYPOTENSION [None]
  - COMA [None]
